FAERS Safety Report 6575651-9 (Version None)
Quarter: 2010Q1

REPORT INFORMATION
  Report Type: 
  Country: None (occurrence: None)
  Receive Date: 20100208
  Receipt Date: 20100208
  Transmission Date: 20100710
  Serious: Yes (Hospitalization)
  Sender: FDA-Public Use
  Company Number: None

PATIENT
  Age: 63 Year
  Sex: Male
  Weight: 82.3 kg

DRUGS (12)
  1. NOVOLIN 70/30 [Suspect]
     Indication: TYPE 2 DIABETES MELLITUS
     Dosage: 15 UNITS BID SQ
     Route: 058
     Dates: start: 20090828, end: 20100129
  2. COVADERM [Concomitant]
  3. SIMVASTATIN [Concomitant]
  4. BUPROPION HCL [Concomitant]
  5. METOCLOPRAMIDE HCL [Concomitant]
  6. FUROSEMIDE [Concomitant]
  7. SIMETHICONE [Concomitant]
  8. CLONIDINE HCL [Concomitant]
  9. HYDRALAZINE [Concomitant]
  10. LOSARTAN POTASSIUM [Concomitant]
  11. OMEPRAZOLE [Concomitant]
  12. SPIRONOLACTONE [Concomitant]

REACTIONS (3)
  - HYPERTENSIVE CRISIS [None]
  - HYPOGLYCAEMIA [None]
  - HYPOPHAGIA [None]
